FAERS Safety Report 12595751 (Version 1)
Quarter: 2016Q3

REPORT INFORMATION
  Report Type: Report from Study
  Country: US (occurrence: US)
  Receive Date: 20160726
  Receipt Date: 20160726
  Transmission Date: 20161109
  Serious: No
  Sender: FDA-Public Use
  Company Number: US-AMGEN-USASL2016031080

PATIENT
  Age: 66 Year
  Sex: Male
  Weight: 67.12 kg

DRUGS (23)
  1. NIASPAN [Concomitant]
     Active Substance: NIACIN
     Dosage: 500 MG, FOUR TIMES A DAY
     Route: 048
  2. DHEA [Concomitant]
     Active Substance: PRASTERONE
     Dosage: 50 MG, QD
     Route: 048
  3. KYPROLIS [Suspect]
     Active Substance: CARFILZOMIB
     Dosage: 1,2,8,9,15,16
     Route: 042
  4. DEXAMETHASONE. [Concomitant]
     Active Substance: DEXAMETHASONE
     Dosage: 20 MG
     Route: 042
  5. FLONASE [Concomitant]
     Active Substance: FLUTICASONE PROPIONATE
     Dosage: 2 SPRAY IN NOSE DAILY
  6. TRAVATAN [Concomitant]
     Active Substance: TRAVOPROST
     Dosage: DROP AT BED TIME
  7. FERROUS SULFATE. [Concomitant]
     Active Substance: FERROUS SULFATE
     Dosage: 325 MG, DAILY
     Route: 048
  8. ZITHROMAX [Concomitant]
     Active Substance: AZITHROMYCIN DIHYDRATE
     Dosage: 500 MG, BID
     Route: 048
  9. KYPROLIS [Suspect]
     Active Substance: CARFILZOMIB
     Indication: PLASMA CELL MYELOMA
     Dosage: UNK UNK, 2 TIMES/WK FOR 21 DAYS THEN A 7 DAY REST
     Route: 042
     Dates: start: 20151201
  10. KYPROLIS [Suspect]
     Active Substance: CARFILZOMIB
     Dosage: 20 MG/M2 1,8, 15
     Route: 042
     Dates: start: 20151203
  11. OXYCONTIN [Concomitant]
     Active Substance: OXYCODONE HYDROCHLORIDE
     Dosage: 20 MG, BID
  12. MAGNESIUM OXIDE. [Concomitant]
     Active Substance: MAGNESIUM OXIDE
     Dosage: 500 MG, TID
     Route: 048
  13. ILOTYCIN                           /00020901/ [Concomitant]
     Dosage: QD
  14. VALTREX [Concomitant]
     Active Substance: VALACYCLOVIR HYDROCHLORIDE
     Dosage: 500 MG, QD
     Route: 048
  15. VITAMIN B COMPLEX [Concomitant]
     Active Substance: CYANOCOBALAMIN\DEXPANTHENOL\NIACINAMIDE\PYRIDOXINE HYDROCHLORIDE\RIBOFLAVIN 5^-PHOSPHATE SODIUM\THIAMINE HYDROCHLORIDE\VITAMIN B COMPLEX
     Dosage: UNK
  16. OXYCODONE [Concomitant]
     Active Substance: OXYCODONE
     Indication: BREAKTHROUGH PAIN
     Dosage: 5 MG, UNK
  17. REVLIMID [Concomitant]
     Active Substance: LENALIDOMIDE
     Indication: PLASMA CELL MYELOMA
     Dosage: 10 MG
     Route: 048
  18. POMALYST [Concomitant]
     Active Substance: POMALIDOMIDE
     Dosage: ONE TABLET DAILY FOR 21 DAYS THEN A 7 DAY REST
  19. ASPIRIN                            /00002701/ [Concomitant]
     Active Substance: ASPIRIN
     Dosage: 81 MG, DAILY
     Route: 048
  20. CINNAMON                           /05656704/ [Concomitant]
     Dosage: 500 MG FOUR TIMES A DAY
     Route: 048
  21. POMALYST [Concomitant]
     Active Substance: POMALIDOMIDE
     Dosage: 2 MG, DAY 1-21
  22. ZOMETA [Concomitant]
     Active Substance: ZOLEDRONIC ACID
     Dosage: UNK
  23. ZITHROMAX [Concomitant]
     Active Substance: AZITHROMYCIN DIHYDRATE
     Dosage: 500 MG, BID
     Route: 048

REACTIONS (3)
  - Back pain [Unknown]
  - Therapeutic response unexpected [Unknown]
  - Off label use [Unknown]

NARRATIVE: CASE EVENT DATE: 201512
